FAERS Safety Report 10447630 (Version 1)
Quarter: 2014Q3

REPORT INFORMATION
  Report Type: Spontaneous
  Country: US (occurrence: None)
  Receive Date: 20140910
  Receipt Date: 20140910
  Transmission Date: 20150326
  Serious: No
  Sender: FDA-Public Use
  Company Number: None

PATIENT

DRUGS (2)
  1. INSULIN U 100 INSULIN [Suspect]
     Active Substance: INSULIN HUMAN
  2. INSULIN U-500 [Suspect]
     Active Substance: INSULIN HUMAN

REACTIONS (1)
  - Syringe issue [None]
